FAERS Safety Report 7650794-7 (Version None)
Quarter: 2011Q3

REPORT INFORMATION
  Report Type: 
  Country: None (occurrence: None)
  Receive Date: 20110802
  Receipt Date: 20110722
  Transmission Date: 20111222
  Serious: Yes (Hospitalization, Disabling)
  Sender: FDA-Public Use
  Company Number: US-MERCK-0911USA04329

PATIENT
  Age: 48 Year
  Sex: Female
  Weight: 48 kg

DRUGS (2)
  1. BONIVA [Suspect]
     Route: 048
     Dates: start: 20060820, end: 20070411
  2. FOSAMAX [Suspect]
     Indication: OSTEOPOROSIS
     Route: 048
     Dates: start: 20000101, end: 20060819

REACTIONS (25)
  - BONE DISORDER [None]
  - GASTRIC ULCER [None]
  - HYPOKALAEMIA [None]
  - PRURITUS [None]
  - BACK DISORDER [None]
  - DENTAL CARIES [None]
  - GINGIVAL ULCERATION [None]
  - INFECTION [None]
  - ORAL TORUS [None]
  - TOOTH FRACTURE [None]
  - OSTEONECROSIS OF JAW [None]
  - SPINAL OSTEOARTHRITIS [None]
  - COLLAGEN DISORDER [None]
  - COUGH [None]
  - VERTEBRAL FORAMINAL STENOSIS [None]
  - SWOLLEN TONGUE [None]
  - VERTIGO POSITIONAL [None]
  - CERVICOBRACHIAL SYNDROME [None]
  - CHEST PAIN [None]
  - IMPAIRED HEALING [None]
  - SCIATICA [None]
  - NAUSEA [None]
  - MUSCULAR WEAKNESS [None]
  - TOOTH DISORDER [None]
  - NEOPLASM SKIN [None]
